FAERS Safety Report 7243802-9 (Version None)
Quarter: 2011Q1

REPORT INFORMATION
  Report Type: 
  Country: None (occurrence: None)
  Receive Date: 20110125
  Receipt Date: 20110111
  Transmission Date: 20110831
  Serious: Yes (Other)
  Sender: FDA-Public Use
  Company Number: PHHY2011GB01908

PATIENT
  Age: 54 Year
  Sex: Male

DRUGS (13)
  1. HALOPERIDOL [Concomitant]
     Route: 048
  2. OMEPRAZOLE [Concomitant]
     Dosage: 40 MG, QD
     Route: 048
  3. BISACODYL [Concomitant]
     Dosage: 10 MG, BID
  4. MIRTAZAPINE [Concomitant]
     Dosage: 30 MG, QD
  5. ONDANSETRON [Concomitant]
     Route: 048
  6. LORAZEPAM [Concomitant]
     Route: 048
  7. DECAPEPTYL - SLOW RELEASE [Concomitant]
     Dosage: 4 ML, UNK (PER MONTH)
     Route: 048
  8. FERROUS SULFATE TAB [Concomitant]
     Dosage: 200 MG, QD
  9. PROCYCLIDINE [Concomitant]
     Route: 048
  10. CLOZARIL [Suspect]
     Indication: SCHIZOPHRENIA
     Dosage: 150 MG, BID
     Route: 048
     Dates: start: 20101108
  11. CLEXANE [Concomitant]
     Route: 048
  12. THIAMINE [Concomitant]
     Dosage: 10 MG, BID
  13. DIAZEPAM [Suspect]
     Dosage: 5 MG, BID
     Route: 048
     Dates: start: 20101124

REACTIONS (5)
  - AGITATION [None]
  - HALLUCINATION [None]
  - SOMNOLENCE [None]
  - TACHYCARDIA [None]
  - BLOOD PRESSURE DECREASED [None]
